FAERS Safety Report 5682782-4 (Version None)
Quarter: 2008Q1

REPORT INFORMATION
  Report Type: 
  Country: None (occurrence: None)
  Receive Date: 20080326
  Receipt Date: 20080326
  Transmission Date: 20080703
  Serious: Yes (Other)
  Sender: FDA-Public Use
  Company Number: None

PATIENT
  Age: 32 Year
  Sex: Female
  Weight: 65.7716 kg

DRUGS (1)
  1. ETODOLAC [Suspect]
     Indication: BACK PAIN
     Dosage: 500MG BID PO
     Route: 048
     Dates: start: 20080321, end: 20080324

REACTIONS (2)
  - BLISTER [None]
  - RASH [None]
